FAERS Safety Report 19273790 (Version 2)
Quarter: 2021Q3

REPORT INFORMATION
  Report Type: Report from Study
  Country: BR (occurrence: BR)
  Receive Date: 20210519
  Receipt Date: 20210707
  Transmission Date: 20211014
  Serious: Yes (Hospitalization, Other)
  Sender: FDA-Public Use
  Company Number: NVSC2021BR104118

PATIENT
  Age: 34 Year
  Sex: Female

DRUGS (4)
  1. FEMARA [Suspect]
     Active Substance: LETROZOLE
     Indication: PRODUCT USED FOR UNKNOWN INDICATION
     Dosage: UNK
     Route: 065
  2. KISQALI [Suspect]
     Active Substance: RIBOCICLIB
     Dosage: 200 MG, QD (1 TABLET)
     Route: 065
     Dates: start: 20210429, end: 20210513
  3. KISQALI [Suspect]
     Active Substance: RIBOCICLIB
     Indication: BREAST CANCER
     Dosage: 200 MG, TID (3 TABLETS)
     Route: 065
     Dates: start: 20200928, end: 202101
  4. ZOLADEX [Concomitant]
     Active Substance: GOSERELIN ACETATE
     Indication: PRODUCT USED FOR UNKNOWN INDICATION
     Dosage: UNK
     Route: 065

REACTIONS (35)
  - Anxiety [Unknown]
  - Sluggishness [Unknown]
  - Feeling abnormal [Unknown]
  - Illness [Recovered/Resolved]
  - Chromaturia [Unknown]
  - Gastric disorder [Unknown]
  - Blood triglycerides increased [Recovered/Resolved]
  - Vomiting [Recovered/Resolved]
  - Metastases to liver [Unknown]
  - Bradykinesia [Recovered/Resolved]
  - Blood test abnormal [Recovered/Resolved]
  - Somnolence [Unknown]
  - Chills [Unknown]
  - Poisoning [Recovered/Resolved]
  - Hepatotoxicity [Unknown]
  - Pain [Unknown]
  - Cough [Recovered/Resolved]
  - Nasopharyngitis [Unknown]
  - Eye colour change [Unknown]
  - Nausea [Recovered/Resolved]
  - Swelling [Recovered/Resolved]
  - Nausea [Unknown]
  - Nausea [Recovered/Resolved]
  - Vomiting [Recovered/Resolved]
  - Eye colour change [Unknown]
  - Chest discomfort [Recovered/Resolved]
  - Eye colour change [Recovered/Resolved]
  - Investigation abnormal [Unknown]
  - Nausea [Unknown]
  - Blood creatine abnormal [Recovered/Resolved]
  - Liver disorder [Recovered/Resolved]
  - Liver disorder [Unknown]
  - Illness [Recovered/Resolved]
  - Nervousness [Unknown]
  - Illness [Unknown]

NARRATIVE: CASE EVENT DATE: 202101
